FAERS Safety Report 24370747 (Version 1)
Quarter: 2024Q3

REPORT INFORMATION
  Report Type: Spontaneous
  Country: US (occurrence: US)
  Receive Date: 20240927
  Receipt Date: 20240927
  Transmission Date: 20241016
  Serious: No
  Sender: ASTELLAS
  Company Number: US-ASTELLAS-2024-AER-008609

PATIENT
  Sex: Female

DRUGS (1)
  1. VEOZAH [Suspect]
     Active Substance: FEZOLINETANT
     Indication: Night sweats
     Route: 065
     Dates: start: 202408

REACTIONS (3)
  - Disease recurrence [Unknown]
  - Food aversion [Unknown]
  - Weight decreased [Unknown]

NARRATIVE: CASE EVENT DATE: 20240901
